FAERS Safety Report 10062260 (Version 2)
Quarter: 2014Q2

REPORT INFORMATION
  Report Type: Spontaneous
  Country: TR (occurrence: TR)
  Receive Date: 20140407
  Receipt Date: 20140509
  Transmission Date: 20141212
  Serious: Yes (Life-Threatening)
  Sender: FDA-Public Use
  Company Number: TR-VERTEX PHARMACEUTICALS INC-2014-001804

PATIENT
  Age: 61 Year
  Sex: Male

DRUGS (5)
  1. INCIVO [Suspect]
     Indication: HEPATITIS C
     Dosage: 750 MG, TID
     Route: 048
     Dates: start: 201308
  2. RIBAVIRIN [Suspect]
     Indication: HEPATITIS C
     Dosage: DOSAGE FORM: UNSPECIFIED, PART OF PIONEERING TREATMENT
     Route: 065
     Dates: start: 20140108
  3. RIBAVIRIN [Suspect]
     Dosage: DOSAGE FORM: UNSPECIFIED
     Route: 065
     Dates: start: 201308
  4. PEGINTERFERON ALFA 2A [Suspect]
     Indication: HEPATITIS C
     Dosage: DOSAGE FORM: UNSPECIFIED
     Route: 065
     Dates: start: 201308
  5. PEGINTERFERON ALFA 2A [Suspect]
     Dosage: DOSAGE FORM: UNSPECIFIED, PART OF PIONEERING TREATMENT
     Route: 065
     Dates: start: 20140108

REACTIONS (1)
  - Anaphylactic shock [Recovered/Resolved]
